FAERS Safety Report 25586118 (Version 1)
Quarter: 2025Q3

REPORT INFORMATION
  Report Type: Spontaneous
  Country: EU (occurrence: EU)
  Receive Date: 20250721
  Receipt Date: 20250721
  Transmission Date: 20251020
  Serious: Yes (Other)
  Sender: MYLAN
  Company Number: None

PATIENT
  Age: 35 Year
  Sex: Male

DRUGS (32)
  1. ZOLPIDEM [Suspect]
     Active Substance: ZOLPIDEM TARTRATE
     Indication: Product used for unknown indication
  2. ZOLPIDEM [Suspect]
     Active Substance: ZOLPIDEM TARTRATE
     Route: 065
  3. ZOLPIDEM [Suspect]
     Active Substance: ZOLPIDEM TARTRATE
     Route: 065
  4. ZOLPIDEM [Suspect]
     Active Substance: ZOLPIDEM TARTRATE
  5. PREGABALIN [Suspect]
     Active Substance: PREGABALIN
     Indication: Product used for unknown indication
  6. PREGABALIN [Suspect]
     Active Substance: PREGABALIN
     Route: 065
  7. PREGABALIN [Suspect]
     Active Substance: PREGABALIN
     Route: 065
  8. PREGABALIN [Suspect]
     Active Substance: PREGABALIN
  9. COCAINE [Suspect]
     Active Substance: COCAINE
     Indication: Product used for unknown indication
  10. COCAINE [Suspect]
     Active Substance: COCAINE
     Route: 065
  11. COCAINE [Suspect]
     Active Substance: COCAINE
     Route: 065
  12. COCAINE [Suspect]
     Active Substance: COCAINE
  13. CANNABIS SATIVA SUBSP. INDICA TOP [Suspect]
     Active Substance: CANNABIS SATIVA SUBSP. INDICA TOP
     Indication: Product used for unknown indication
  14. CANNABIS SATIVA SUBSP. INDICA TOP [Suspect]
     Active Substance: CANNABIS SATIVA SUBSP. INDICA TOP
     Route: 065
  15. CANNABIS SATIVA SUBSP. INDICA TOP [Suspect]
     Active Substance: CANNABIS SATIVA SUBSP. INDICA TOP
     Route: 065
  16. CANNABIS SATIVA SUBSP. INDICA TOP [Suspect]
     Active Substance: CANNABIS SATIVA SUBSP. INDICA TOP
  17. MIDOMAFETAMINE [Suspect]
     Active Substance: MIDOMAFETAMINE
     Indication: Product used for unknown indication
  18. MIDOMAFETAMINE [Suspect]
     Active Substance: MIDOMAFETAMINE
     Route: 065
  19. MIDOMAFETAMINE [Suspect]
     Active Substance: MIDOMAFETAMINE
     Route: 065
  20. MIDOMAFETAMINE [Suspect]
     Active Substance: MIDOMAFETAMINE
  21. AMPHETAMINE [Suspect]
     Active Substance: AMPHETAMINE
     Indication: Product used for unknown indication
  22. AMPHETAMINE [Suspect]
     Active Substance: AMPHETAMINE
     Route: 065
  23. AMPHETAMINE [Suspect]
     Active Substance: AMPHETAMINE
     Route: 065
  24. AMPHETAMINE [Suspect]
     Active Substance: AMPHETAMINE
  25. OXAZEPAM [Suspect]
     Active Substance: OXAZEPAM
     Indication: Product used for unknown indication
  26. OXAZEPAM [Suspect]
     Active Substance: OXAZEPAM
     Route: 065
  27. OXAZEPAM [Suspect]
     Active Substance: OXAZEPAM
     Route: 065
  28. OXAZEPAM [Suspect]
     Active Substance: OXAZEPAM
  29. CLONAZEPAM [Suspect]
     Active Substance: CLONAZEPAM
     Indication: Product used for unknown indication
  30. CLONAZEPAM [Suspect]
     Active Substance: CLONAZEPAM
     Route: 065
  31. CLONAZEPAM [Suspect]
     Active Substance: CLONAZEPAM
     Route: 065
  32. CLONAZEPAM [Suspect]
     Active Substance: CLONAZEPAM

REACTIONS (5)
  - Altered state of consciousness [Recovered/Resolved]
  - Hypercapnia [Recovered/Resolved]
  - Substance use disorder [Unknown]
  - Drug use disorder [Unknown]
  - Hyperhidrosis [Recovered/Resolved]
